FAERS Safety Report 10967328 (Version 1)
Quarter: 2015Q1

REPORT INFORMATION
  Report Type: Spontaneous
  Country: US (occurrence: None)
  Receive Date: 20150226
  Receipt Date: 20150226
  Transmission Date: 20150721
  Serious: No
  Sender: FDA-Public Use
  Company Number: TPA2010A02136

PATIENT
  Age: 44 Year
  Sex: Male
  Weight: 73.39 kg

DRUGS (4)
  1. MELOXICAM. [Concomitant]
     Active Substance: MELOXICAM
  2. ULORIC [Suspect]
     Active Substance: FEBUXOSTAT
     Indication: GOUTY TOPHUS
     Route: 048
  3. COLCHICINE. [Concomitant]
     Active Substance: COLCHICINE
  4. ULORIC [Suspect]
     Active Substance: FEBUXOSTAT
     Indication: GOUT
     Route: 048

REACTIONS (1)
  - Erectile dysfunction [None]
